FAERS Safety Report 9394790 (Version 1)
Quarter: 2013Q3

REPORT INFORMATION
  Report Type: Spontaneous
  Country: US (occurrence: None)
  Receive Date: 20130709
  Receipt Date: 20130709
  Transmission Date: 20140515
  Serious: Yes (Life-Threatening, Hospitalization)
  Sender: FDA-Public Use
  Company Number: None

PATIENT
  Age: 77 Year
  Sex: Female
  Weight: 75.9 kg

DRUGS (1)
  1. RIVAROXABAN [Suspect]
     Indication: ATRIAL FIBRILLATION
     Dosage: APPROXIMATELY 12-14 DAYS
     Route: 048

REACTIONS (4)
  - Haematuria [None]
  - Epistaxis [None]
  - Haemoptysis [None]
  - International normalised ratio increased [None]
